FAERS Safety Report 9316194 (Version 1)
Quarter: 2013Q2

REPORT INFORMATION
  Report Type: Spontaneous
  Country: US (occurrence: None)
  Receive Date: 20130528
  Receipt Date: 20130528
  Transmission Date: 20140414
  Serious: Yes (Other)
  Sender: FDA-Public Use
  Company Number: None

PATIENT
  Age: 58 Year
  Sex: Male
  Weight: 108.2 kg

DRUGS (1)
  1. SPRYCEL [Suspect]
     Route: 048
     Dates: start: 20130201

REACTIONS (3)
  - Dyspnoea [None]
  - Cough [None]
  - Chest discomfort [None]
